FAERS Safety Report 8169228-1 (Version None)
Quarter: 2012Q1

REPORT INFORMATION
  Report Type: 
  Country: None (occurrence: None)
  Receive Date: 20120227
  Receipt Date: 20120217
  Transmission Date: 20120608
  Serious: Yes (Other)
  Sender: FDA-Public Use
  Company Number: US-ASTRAZENECA-2012SE11608

PATIENT
  Age: 56 Year
  Sex: Female

DRUGS (3)
  1. RHINOCORT [Suspect]
     Route: 045
  2. CRESTOR [Suspect]
     Route: 048
  3. NEXIUM [Suspect]
     Route: 048

REACTIONS (4)
  - PULMONARY MASS [None]
  - PULMONARY FIBROSIS [None]
  - GASTROOESOPHAGEAL REFLUX DISEASE [None]
  - PNEUMONIA [None]
